FAERS Safety Report 9494072 (Version 1)
Quarter: 2013Q3

REPORT INFORMATION
  Report Type: Spontaneous
  Country: JP (occurrence: None)
  Receive Date: 20130827
  Receipt Date: 20130827
  Transmission Date: 20140515
  Serious: Yes (Hospitalization)
  Sender: FDA-Public Use
  Company Number: 2013P1018542

PATIENT
  Age: 43 Year
  Sex: Male
  Weight: 64.4 kg

DRUGS (5)
  1. ISONIAZID [Suspect]
     Indication: PULMONARY TUBERCULOSIS
  2. RIFAMPICIN [Concomitant]
  3. PYRAZINAMIDE [Concomitant]
  4. ETHAMBUTOL [Concomitant]
  5. ALLOPURINOL [Concomitant]

REACTIONS (18)
  - Drug reaction with eosinophilia and systemic symptoms [None]
  - Hepatic function abnormal [None]
  - Pyrexia [None]
  - Nausea [None]
  - Headache [None]
  - Vomiting [None]
  - Drug-induced liver injury [None]
  - Blood pressure decreased [None]
  - Jaundice [None]
  - Hepatomegaly [None]
  - Splenomegaly [None]
  - Drug reaction with eosinophilia and systemic symptoms [None]
  - Cytomegalovirus infection [None]
  - Human herpesvirus 6 infection [None]
  - Lymphocyte stimulation test positive [None]
  - Decreased appetite [None]
  - Aspartate aminotransferase increased [None]
  - Alanine aminotransferase increased [None]
